FAERS Safety Report 11832115 (Version 2)
Quarter: 2016Q1

REPORT INFORMATION
  Report Type: Report from Study
  Country: CO (occurrence: CO)
  Receive Date: 20151214
  Receipt Date: 20160121
  Transmission Date: 20160525
  Serious: Yes (Death, Hospitalization)
  Sender: FDA-Public Use
  Company Number: PHHY2015CO163526

PATIENT
  Sex: Female
  Weight: 60 kg

DRUGS (2)
  1. REVOLADE [Suspect]
     Active Substance: ELTROMBOPAG
     Indication: IMMUNE THROMBOCYTOPENIC PURPURA
     Dosage: 500 MG, QD (IN THE MORNING)
     Route: 048
     Dates: start: 20151113
  2. REVOLADE [Suspect]
     Active Substance: ELTROMBOPAG
     Dosage: 500 MG, BID (1 IN THE MORNING, 1 IN THE AFTERNOON)
     Route: 048

REACTIONS (8)
  - Thrombosis [Unknown]
  - Renal failure [Fatal]
  - Respiratory disorder [Fatal]
  - Swelling [Fatal]
  - Vocal cord disorder [Fatal]
  - Urine output decreased [Fatal]
  - Feeding disorder [Fatal]
  - Vaginal haemorrhage [Recovering/Resolving]
